FAERS Safety Report 11308240 (Version 1)
Quarter: 2015Q3

REPORT INFORMATION
  Report Type: Report from Study
  Country: RO (occurrence: RO)
  Receive Date: 20150724
  Receipt Date: 20150724
  Transmission Date: 20151125
  Serious: Yes (Death, Other)
  Sender: FDA-Public Use
  Company Number: RO-ASTRAZENECA-2015SE71236

PATIENT
  Age: 70 Year
  Sex: Male

DRUGS (3)
  1. DUODOPA [Suspect]
     Active Substance: CARBIDOPA\LEVODOPA
     Indication: PARKINSON^S DISEASE
     Dosage: 16/24 MD: 11 ML, CR: 5 ML/H, ED: 2.5 ML
     Route: 050
     Dates: start: 20150217
  2. LOKREN [Concomitant]
     Active Substance: BETAXOLOL HYDROCHLORIDE
     Indication: ESSENTIAL HYPERTENSION
  3. SEROQUEL [Suspect]
     Active Substance: QUETIAPINE FUMARATE
     Route: 048

REACTIONS (12)
  - Concussion [Fatal]
  - Agitation [Fatal]
  - Abnormal behaviour [Fatal]
  - Speech disorder [Fatal]
  - Aggression [Fatal]
  - Psychotic disorder [Fatal]
  - Sudden death [Fatal]
  - Memory impairment [Fatal]
  - Sexual dysfunction [Fatal]
  - Urinary incontinence [Fatal]
  - Faecal incontinence [Fatal]
  - Dyspnoea [Unknown]

NARRATIVE: CASE EVENT DATE: 20150610
